FAERS Safety Report 6527554-3 (Version None)
Quarter: 2010Q1

REPORT INFORMATION
  Report Type: 
  Country: None (occurrence: None)
  Receive Date: 20100105
  Receipt Date: 20091230
  Transmission Date: 20100710
  Serious: Yes (Other)
  Sender: FDA-Public Use
  Company Number: US-JNJCH-2009033332

PATIENT
  Sex: Female
  Weight: 90.7 kg

DRUGS (6)
  1. KIRKLAND SIGNATURE 2% [Suspect]
     Indication: ALOPECIA
     Dosage: TEXT:AS DIRECTED 2X PER DAY
     Route: 061
  2. ACCUPRIL [Concomitant]
     Indication: BLOOD PRESSURE
     Dosage: TEXT:UNKNOWN
     Route: 065
  3. LIPITOR [Concomitant]
     Indication: BLOOD CHOLESTEROL
     Dosage: TEXT:UNKNOWN
     Route: 065
  4. ACETYLSALICYLIC ACID [Concomitant]
     Indication: DRUG USE FOR UNKNOWN INDICATION
     Dosage: TEXT:UNKNOWN
     Route: 065
  5. INSULIN [Concomitant]
     Indication: DIABETES MELLITUS
     Dosage: TEXT:UNKNOWN
     Route: 065
  6. LASIX [Concomitant]
     Indication: DIURETIC THERAPY
     Dosage: TEXT:UNKNOWN
     Route: 065

REACTIONS (5)
  - CHEST PAIN [None]
  - DIZZINESS [None]
  - HEART RATE INCREASED [None]
  - OEDEMA PERIPHERAL [None]
  - VASCULAR GRAFT [None]
